FAERS Safety Report 8111931 (Version 9)
Quarter: 2013Q1

REPORT INFORMATION
  Report Type: Spontaneous
  Country: SE (occurrence: SE)
  Receive Date: 20110829
  Receipt Date: 20130112
  Transmission Date: 20140127
  Serious: Yes (Other)
  Sender: FDA-Public Use
  Company Number: SE-AMGEN-SWESP2011042826

PATIENT
  Age: 57 Year
  Sex: Female

DRUGS (7)
  1. PROLIA [Suspect]
     Indication: OSTEOPOROSIS
     Dosage: 60 MG, Q6MO
     Route: 058
     Dates: start: 20110707
  2. CORTISONE [Concomitant]
     Indication: POLYMYALGIA RHEUMATICA
  3. CALCIUM [Concomitant]
  4. VITAMIN D3 [Concomitant]
  5. OMEPRAZOL                          /00661201/ [Concomitant]
  6. PREDNISOLON                        /00016201/ [Concomitant]
     Dosage: 5 MG, UNK
  7. CALCICHEW D3 [Concomitant]

REACTIONS (5)
  - Connective tissue disorder [Recovered/Resolved]
  - Pelvic pain [Recovered/Resolved]
  - Myalgia [Recovered/Resolved]
  - Arthralgia [Recovered/Resolved]
  - Pain [Not Recovered/Not Resolved]
